FAERS Safety Report 8480229-6 (Version None)
Quarter: 2012Q2

REPORT INFORMATION
  Report Type: 
  Country: None (occurrence: None)
  Receive Date: 20120629
  Receipt Date: 20120625
  Transmission Date: 20120825
  Serious: Yes (Disabling, Other)
  Sender: FDA-Public Use
  Company Number: GB-ALLERGAN-1208841US

PATIENT
  Sex: Male

DRUGS (1)
  1. BETAGAN [Suspect]
     Indication: PRODUCT USED FOR UNKNOWN INDICATION
     Dosage: RIGHT EYE UNSPECIFIED DOSE
     Route: 047
     Dates: start: 19760101

REACTIONS (3)
  - BLINDNESS UNILATERAL [None]
  - RETINAL DETACHMENT [None]
  - LENS DISORDER [None]
